FAERS Safety Report 18733489 (Version 1)
Quarter: 2021Q1

REPORT INFORMATION
  Report Type: Spontaneous
  Country: US (occurrence: US)
  Receive Date: 20210112
  Receipt Date: 20210112
  Transmission Date: 20210419
  Serious: No
  Sender: FDA-Public Use
  Company Number: US-LUNDBECK-DKLU3023565

PATIENT
  Age: 31 Year
  Sex: Female

DRUGS (1)
  1. NORTHERA [Suspect]
     Active Substance: DROXIDOPA
     Indication: PRODUCT USED FOR UNKNOWN INDICATION
     Dosage: AT VARYING DOSES MOSTLY BETWEEN 500 ? 600MG TID
     Route: 065
     Dates: start: 2015

REACTIONS (2)
  - Raynaud^s phenomenon [Not Recovered/Not Resolved]
  - Condition aggravated [Not Recovered/Not Resolved]
